FAERS Safety Report 6590393-1 (Version None)
Quarter: 2010Q1

REPORT INFORMATION
  Report Type: 
  Country: None (occurrence: None)
  Receive Date: 20100219
  Receipt Date: 20100212
  Transmission Date: 20100710
  Serious: Yes (Death, Other)
  Sender: FDA-Public Use
  Company Number: JP-ROCHE-663681

PATIENT
  Sex: Female
  Weight: 43 kg

DRUGS (8)
  1. CAPECITABINE [Suspect]
     Indication: LARGE INTESTINE CARCINOMA
     Route: 048
     Dates: start: 20090528, end: 20090610
  2. CAPECITABINE [Suspect]
     Route: 048
     Dates: start: 20090618, end: 20090701
  3. CAPECITABINE [Suspect]
     Route: 048
     Dates: start: 20090709, end: 20090722
  4. CAPECITABINE [Suspect]
     Route: 048
     Dates: start: 20090130, end: 20090812
  5. CAPECITABINE [Suspect]
     Route: 048
     Dates: start: 20090820, end: 20090902
  6. GASMOTIN [Concomitant]
     Route: 048
     Dates: start: 20090514, end: 20091014
  7. DAI-KENCHU-TO [Concomitant]
     Dosage: DOSE FORM: PERORAL AGENT.
     Route: 048
     Dates: start: 20090514, end: 20091014
  8. PYDOXAL [Concomitant]
     Route: 048
     Dates: start: 20090528, end: 20090902

REACTIONS (6)
  - ALANINE AMINOTRANSFERASE INCREASED [None]
  - ASPARTATE AMINOTRANSFERASE INCREASED [None]
  - BLOOD BILIRUBIN INCREASED [None]
  - HEPATIC FUNCTION ABNORMAL [None]
  - PALMAR-PLANTAR ERYTHRODYSAESTHESIA SYNDROME [None]
  - SEPSIS [None]
